FAERS Safety Report 8157149-X (Version None)
Quarter: 2012Q1

REPORT INFORMATION
  Report Type: 
  Country: None (occurrence: None)
  Receive Date: 20120222
  Receipt Date: 20120123
  Transmission Date: 20120608
  Serious: Yes (Other)
  Sender: FDA-Public Use
  Company Number: JP-ROCHE-1034155

PATIENT
  Age: 93 Year

DRUGS (1)
  1. TAMIFLU [Suspect]
     Indication: INFLUENZA
     Route: 048
     Dates: start: 20120120, end: 20120122

REACTIONS (3)
  - FALL [None]
  - ABNORMAL BEHAVIOUR [None]
  - HAND FRACTURE [None]
